FAERS Safety Report 16329245 (Version 1)
Quarter: 2019Q2

REPORT INFORMATION
  Report Type: Spontaneous
  Country: US (occurrence: US)
  Receive Date: 20190520
  Receipt Date: 20190520
  Transmission Date: 20190711
  Serious: No
  Sender: FDA-Public Use
  Company Number: US-BION-007310

PATIENT
  Age: 83 Year
  Sex: Female
  Weight: 58.06 kg

DRUGS (1)
  1. MOTRIN IB [Suspect]
     Active Substance: IBUPROFEN
     Indication: BACK PAIN
     Dosage: STRENGTH: 200 MG
     Route: 048
     Dates: start: 20180702, end: 20180702

REACTIONS (5)
  - Generalised erythema [Recovering/Resolving]
  - Pruritus generalised [Recovering/Resolving]
  - Swelling [Recovering/Resolving]
  - Dyspnoea [Unknown]
  - Pharyngeal swelling [Recovering/Resolving]

NARRATIVE: CASE EVENT DATE: 20180702
